FAERS Safety Report 4716719-9 (Version None)
Quarter: 2005Q3

REPORT INFORMATION
  Report Type: 
  Country: None (occurrence: None)
  Receive Date: 20050714
  Receipt Date: 20050707
  Transmission Date: 20060218
  Serious: No
  Sender: FDA-Public Use
  Company Number: 05H-163-0299698-00

PATIENT
  Sex: Male

DRUGS (2)
  1. EPINEPHRINE 1 MG/ML INJECTION, USP, 1 ML AMPULE (EPINEPHRINE) [Suspect]
     Dates: start: 20050516
  2. HOME MEDICATIONS [Concomitant]

REACTIONS (2)
  - CATARACT OPERATION COMPLICATION [None]
  - EYE INFECTION STAPHYLOCOCCAL [None]
